FAERS Safety Report 12627835 (Version 1)
Quarter: 2016Q3

REPORT INFORMATION
  Report Type: Spontaneous
  Country: US (occurrence: US)
  Receive Date: 20160806
  Receipt Date: 20160806
  Transmission Date: 20161109
  Serious: No
  Sender: FDA-Public Use
  Company Number: US-009507513-1608USA000581

PATIENT
  Age: 18 Year
  Sex: Female
  Weight: 90.7 kg

DRUGS (1)
  1. NEXPLANON [Suspect]
     Active Substance: ETONOGESTREL
     Indication: CONTRACEPTION
     Dosage: IN THE LEFT ARM
     Dates: start: 201307

REACTIONS (3)
  - Vomiting [Unknown]
  - Abnormal dreams [Unknown]
  - Syncope [Unknown]

NARRATIVE: CASE EVENT DATE: 20160715
